FAERS Safety Report 4725713-3 (Version None)
Quarter: 2005Q3

REPORT INFORMATION
  Report Type: 
  Country: None (occurrence: None)
  Receive Date: 20050722
  Receipt Date: 20050722
  Transmission Date: 20060218
  Serious: No
  Sender: FDA-Public Use
  Company Number: None

PATIENT
  Age: 62 Year
  Sex: Male
  Weight: 81.6475 kg

DRUGS (1)
  1. ZOMEDA [Suspect]

REACTIONS (4)
  - OSTEONECROSIS [None]
  - PURULENCE [None]
  - SUPERINFECTION [None]
  - TOOTH EXTRACTION [None]
